FAERS Safety Report 6901725-6 (Version None)
Quarter: 2010Q3

REPORT INFORMATION
  Report Type: 
  Country: None (occurrence: None)
  Receive Date: 20100803
  Receipt Date: 20080314
  Transmission Date: 20110219
  Serious: Yes (Other)
  Sender: FDA-Public Use
  Company Number: US-PFIZER INC-2008006909

PATIENT
  Sex: Female
  Weight: 66.2 kg

DRUGS (3)
  1. LYRICA [Suspect]
     Indication: CENTRAL PAIN SYNDROME
     Dates: start: 20060210, end: 20080117
  2. LYRICA [Suspect]
     Indication: NEUROPATHY PERIPHERAL
  3. ALL OTHER THERAPEUTIC PRODUCTS [Suspect]

REACTIONS (2)
  - FALL [None]
  - WEIGHT INCREASED [None]
